FAERS Safety Report 12484559 (Version 1)
Quarter: 2016Q2

REPORT INFORMATION
  Report Type: Spontaneous
  Country: US (occurrence: None)
  Receive Date: 20160620
  Receipt Date: 20160620
  Transmission Date: 20160815
  Serious: Yes (Disabling, Other)
  Sender: FDA-Public Use
  Company Number: None

PATIENT
  Age: 45 Year
  Sex: Female

DRUGS (2)
  1. GENTAMYCIN [Suspect]
     Active Substance: GENTAMICIN
     Indication: INFECTION
     Route: 042
  2. VANCOMYCIN [Suspect]
     Active Substance: VANCOMYCIN
     Indication: INFECTION
     Route: 042

REACTIONS (9)
  - Dizziness [None]
  - Neurotoxicity [None]
  - Drug monitoring procedure not performed [None]
  - Vomiting [None]
  - Ototoxicity [None]
  - Weight decreased [None]
  - Nausea [None]
  - Dehydration [None]
  - Vestibular disorder [None]
